FAERS Safety Report 18439825 (Version 9)
Quarter: 2024Q4

REPORT INFORMATION
  Report Type: Spontaneous
  Country: CA (occurrence: CA)
  Receive Date: 20201029
  Receipt Date: 20241210
  Transmission Date: 20250115
  Serious: Yes (Life-Threatening, Hospitalization, Other)
  Sender: CELLTRION
  Company Number: CA-CELLTRION INC.-2020CA029566

PATIENT

DRUGS (63)
  1. RITUXIMAB [Suspect]
     Active Substance: RITUXIMAB
     Indication: Thrombotic thrombocytopenic purpura
     Dosage: UNK
     Route: 065
  2. RITUXIMAB [Suspect]
     Active Substance: RITUXIMAB
     Indication: Immunosuppressant drug therapy
     Dosage: 900 MILLIGRAM, 1 EVERY 1 WEEK
     Route: 042
  3. RITUXIMAB [Suspect]
     Active Substance: RITUXIMAB
     Dosage: 375 MG/M2, 2 EVERY 1 WEEKS
     Route: 065
  4. RITUXIMAB [Suspect]
     Active Substance: RITUXIMAB
     Dosage: 900 MG/M2, 1 EVERY 1 DAYS
     Route: 065
  5. RITUXIMAB [Suspect]
     Active Substance: RITUXIMAB
     Dosage: 375 MG/M2, 1 EVERY 1 WEEK
     Route: 042
  6. RITUXIMAB [Suspect]
     Active Substance: RITUXIMAB
     Dosage: 375 MG/M2, 1 EVERY .5 WEEK
     Route: 042
  7. RITUXIMAB [Suspect]
     Active Substance: RITUXIMAB
     Dosage: UNK
     Route: 065
  8. RITUXIMAB [Suspect]
     Active Substance: RITUXIMAB
     Dosage: UNK
     Route: 042
  9. RITUXIMAB [Suspect]
     Active Substance: RITUXIMAB
     Dosage: 90 MG 1 EVERY 1 WEEK
     Route: 042
  10. BORTEZOMIB [Suspect]
     Active Substance: BORTEZOMIB
     Indication: Thrombotic thrombocytopenic purpura
     Dosage: 3.1 MILLIGRAM, CYCLICAL
     Route: 042
  11. BORTEZOMIB [Suspect]
     Active Substance: BORTEZOMIB
     Indication: Immunosuppressant drug therapy
  12. BORTEZOMIB [Suspect]
     Active Substance: BORTEZOMIB
     Indication: Immunosuppressant drug therapy
     Dosage: 1.3 MG/M2, CYCLICAL
     Route: 042
  13. BORTEZOMIB [Suspect]
     Active Substance: BORTEZOMIB
     Indication: Thrombotic thrombocytopenic purpura
     Dosage: 3.1 MILLIGRAM, CYCLICAL
     Route: 042
  14. BORTEZOMIB [Suspect]
     Active Substance: BORTEZOMIB
     Dosage: 3.1 MILLIGRAM
     Route: 042
  15. BORTEZOMIB [Suspect]
     Active Substance: BORTEZOMIB
     Dosage: UNK
     Route: 042
  16. BORTEZOMIB [Suspect]
     Active Substance: BORTEZOMIB
     Dosage: UNK
     Route: 042
  17. BORTEZOMIB [Suspect]
     Active Substance: BORTEZOMIB
     Dosage: UNK
     Route: 042
  18. BORTEZOMIB [Suspect]
     Active Substance: BORTEZOMIB
     Indication: Thrombotic thrombocytopenic purpura
     Dosage: 3.1 MILLIGRAM
  19. BORTEZOMIB [Suspect]
     Active Substance: BORTEZOMIB
     Indication: Immunosuppressant drug therapy
     Dosage: 1.3 MG/M2, CYCLICAL
  20. BORTEZOMIB [Suspect]
     Active Substance: BORTEZOMIB
     Indication: Thrombotic thrombocytopenic purpura
     Dosage: 3.1 MILLIGRAM
     Route: 042
  21. CYCLOSPORINE [Suspect]
     Active Substance: CYCLOSPORINE
     Indication: Thrombotic thrombocytopenic purpura
     Dosage: 300 MG
     Route: 048
  22. CYCLOSPORINE [Suspect]
     Active Substance: CYCLOSPORINE
     Indication: Immunosuppressant drug therapy
     Dosage: UNK
     Route: 065
  23. CYCLOSPORINE [Suspect]
     Active Substance: CYCLOSPORINE
     Indication: Thrombotic thrombocytopenic purpura
     Dosage: 300.0 MILLIGRAM, EVERY 1 DAYS
     Route: 048
  24. CYCLOSPORINE [Suspect]
     Active Substance: CYCLOSPORINE
     Indication: Immunosuppressant drug therapy
     Dosage: UNK
     Route: 048
  25. CYCLOSPORINE [Suspect]
     Active Substance: CYCLOSPORINE
     Indication: Thrombotic thrombocytopenic purpura
     Dosage: 300 MILLIGRAM, EVERY 1 DAY
     Route: 048
  26. CYCLOSPORINE [Suspect]
     Active Substance: CYCLOSPORINE
     Indication: Immunosuppressant drug therapy
     Dosage: UNK
     Route: 065
  27. CYCLOPHOSPHAMIDE [Suspect]
     Active Substance: CYCLOPHOSPHAMIDE
     Indication: Immunosuppressant drug therapy
     Dosage: 2 DOSAGE FORMS
     Route: 042
  28. CYCLOPHOSPHAMIDE [Suspect]
     Active Substance: CYCLOPHOSPHAMIDE
     Dosage: UNK
     Route: 042
  29. CYCLOPHOSPHAMIDE [Suspect]
     Active Substance: CYCLOPHOSPHAMIDE
     Dosage: UNK
     Route: 042
  30. CYCLOPHOSPHAMIDE [Suspect]
     Active Substance: CYCLOPHOSPHAMIDE
     Dosage: UNK
     Route: 042
  31. CYCLOPHOSPHAMIDE [Suspect]
     Active Substance: CYCLOPHOSPHAMIDE
     Indication: Immunosuppressant drug therapy
     Dosage: 200 MG
     Route: 042
  32. CYCLOPHOSPHAMIDE [Suspect]
     Active Substance: CYCLOPHOSPHAMIDE
     Indication: Thrombotic thrombocytopenic purpura
     Dosage: 750 MG
     Route: 042
  33. CYCLOPHOSPHAMIDE [Suspect]
     Active Substance: CYCLOPHOSPHAMIDE
     Dosage: 1250 MG, 1 EVERY 1 DAYS
     Route: 042
  34. CYCLOPHOSPHAMIDE [Suspect]
     Active Substance: CYCLOPHOSPHAMIDE
     Indication: Immunosuppressant drug therapy
     Dosage: 2 DOSAGE FORMS
     Route: 042
  35. CYCLOPHOSPHAMIDE [Suspect]
     Active Substance: CYCLOPHOSPHAMIDE
     Indication: Thrombotic thrombocytopenic purpura
     Dosage: 200 MG
     Route: 042
  36. CYCLOPHOSPHAMIDE [Suspect]
     Active Substance: CYCLOPHOSPHAMIDE
     Dosage: 1250 MG, 1 EVERY 1 DAY
     Route: 042
  37. CYCLOPHOSPHAMIDE [Suspect]
     Active Substance: CYCLOPHOSPHAMIDE
     Dosage: 750 MG
     Route: 042
  38. CYCLOPHOSPHAMIDE [Suspect]
     Active Substance: CYCLOPHOSPHAMIDE
     Dosage: UNK
     Route: 042
  39. METHYLPREDNISOLONE [Suspect]
     Active Substance: METHYLPREDNISOLONE
     Indication: Immunosuppressant drug therapy
     Dosage: UNK
     Route: 065
  40. METHYLPREDNISOLONE [Suspect]
     Active Substance: METHYLPREDNISOLONE
     Indication: Thrombotic thrombocytopenic purpura
     Dosage: EVERY 1 DAYS
     Route: 065
  41. METHYLPREDNISOLONE [Suspect]
     Active Substance: METHYLPREDNISOLONE
     Dosage: 100 MG, 1 EVERY 1 DAY
     Route: 065
  42. METHYLPREDNISOLONE [Suspect]
     Active Substance: METHYLPREDNISOLONE
     Indication: Immunosuppressant drug therapy
     Dosage: 100 MG, 1 EVERY 1 DAYS
     Route: 065
  43. METHYLPREDNISOLONE [Suspect]
     Active Substance: METHYLPREDNISOLONE
     Indication: Thrombotic thrombocytopenic purpura
  44. METHYLPREDNISOLONE SODIUM SUCCINATE [Suspect]
     Active Substance: METHYLPREDNISOLONE SODIUM SUCCINATE
     Indication: Thrombotic thrombocytopenic purpura
     Dosage: 1 EVERY 1 DAYS
     Route: 065
  45. METHYLPREDNISOLONE SODIUM SUCCINATE [Suspect]
     Active Substance: METHYLPREDNISOLONE SODIUM SUCCINATE
     Dosage: 100 MILLIGRAM, 2 EVERY 1 WEEKS
     Route: 065
  46. METHYLPREDNISOLONE SODIUM SUCCINATE [Suspect]
     Active Substance: METHYLPREDNISOLONE SODIUM SUCCINATE
     Dosage: UNK
     Route: 065
  47. METHYLPREDNISOLONE SODIUM SUCCINATE [Suspect]
     Active Substance: METHYLPREDNISOLONE SODIUM SUCCINATE
     Dosage: 1 EVERY 1 DAY
     Route: 065
  48. METHYLPREDNISOLONE SODIUM SUCCINATE [Suspect]
     Active Substance: METHYLPREDNISOLONE SODIUM SUCCINATE
     Dosage: 200 MILLIGRAM, 1 EVERY 1 WEEKS
     Route: 065
  49. METHYLPREDNISOLONE SODIUM SUCCINATE [Suspect]
     Active Substance: METHYLPREDNISOLONE SODIUM SUCCINATE
     Dosage: 1 EVERY 1 DAYS
     Route: 042
  50. METHYLPREDNISOLONE SODIUM SUCCINATE [Suspect]
     Active Substance: METHYLPREDNISOLONE SODIUM SUCCINATE
     Dosage: UNK
     Route: 065
  51. METHYLPREDNISOLONE SODIUM SUCCINATE [Suspect]
     Active Substance: METHYLPREDNISOLONE SODIUM SUCCINATE
     Dosage: 100 MG 1 EVERY 2 WEEKS
     Route: 065
  52. ACETYLCYSTEINE [Suspect]
     Active Substance: ACETYLCYSTEINE
     Indication: Thrombotic thrombocytopenic purpura
     Dosage: 18 GRAM, EVERY 1 DAY
     Route: 042
  53. ACETYLCYSTEINE [Suspect]
     Active Substance: ACETYLCYSTEINE
     Dosage: UNK
     Route: 042
  54. ACETYLCYSTEINE [Suspect]
     Active Substance: ACETYLCYSTEINE
     Indication: Thrombotic thrombocytopenic purpura
     Dosage: 18.0 GRAM, EVERY 1 DAYS
     Route: 042
  55. CYCLOPHOSPHAMIDE [Suspect]
     Active Substance: CYCLOPHOSPHAMIDE
     Indication: Thrombotic thrombocytopenic purpura
     Dosage: 1250 MILLIGRAM, TOTAL
     Route: 042
  56. CYCLOPHOSPHAMIDE [Suspect]
     Active Substance: CYCLOPHOSPHAMIDE
     Dosage: 750.0 MILLIGRAM, TOTAL
     Route: 042
  57. CYCLOPHOSPHAMIDE [Suspect]
     Active Substance: CYCLOPHOSPHAMIDE
     Dosage: 1250 MILLIGRAM
     Route: 042
  58. CYCLOPHOSPHAMIDE [Suspect]
     Active Substance: CYCLOPHOSPHAMIDE
     Indication: Thrombotic thrombocytopenic purpura
     Dosage: 750 MG, TOTAL
     Route: 042
  59. CYCLOPHOSPHAMIDE [Suspect]
     Active Substance: CYCLOPHOSPHAMIDE
     Dosage: 1250 MG
     Route: 042
  60. CYCLOPHOSPHAMIDE [Suspect]
     Active Substance: CYCLOPHOSPHAMIDE
     Dosage: 750 GRAM
     Route: 042
  61. ACITRETIN [Concomitant]
     Active Substance: ACITRETIN
     Indication: Psoriasis
     Route: 065
  62. ACITRETIN [Concomitant]
     Active Substance: ACITRETIN
     Indication: Psoriasis
     Dosage: UNK
  63. ACITRETIN [Concomitant]
     Active Substance: ACITRETIN
     Dosage: UNK
     Route: 065

REACTIONS (26)
  - Brain oedema [Unknown]
  - Hemianopia [Unknown]
  - Thrombotic thrombocytopenic purpura [Unknown]
  - Cerebral infarction [Unknown]
  - Abdominal abscess [Unknown]
  - Candida infection [Unknown]
  - Clostridium difficile infection [Unknown]
  - Empyema [Unknown]
  - Enterococcal infection [Unknown]
  - Klebsiella infection [Unknown]
  - Bacteraemia [Unknown]
  - Cerebrovascular accident [Unknown]
  - Device related sepsis [Unknown]
  - Muscular weakness [Unknown]
  - Staphylococcal sepsis [Unknown]
  - Sepsis [Unknown]
  - Staphylococcal bacteraemia [Unknown]
  - Vascular device infection [Unknown]
  - Device related infection [Unknown]
  - Drug ineffective [Unknown]
  - Intentional product use issue [Unknown]
  - Off label use [Unknown]
  - Intentional product misuse [Unknown]
  - Product use in unapproved indication [Unknown]
  - Treatment failure [Unknown]
  - Intentional product use issue [Unknown]
